FAERS Safety Report 9556728 (Version 3)
Quarter: 2014Q3

REPORT INFORMATION
  Report Type: Spontaneous
  Country: CN (occurrence: CN)
  Receive Date: 20130926
  Receipt Date: 20140911
  Transmission Date: 20150326
  Serious: Yes (Death)
  Sender: FDA-Public Use
  Company Number: CN-ASTRAZENECA-2013SE71314

PATIENT
  Age: 27481 Day
  Sex: Female
  Weight: 70 kg

DRUGS (4)
  1. RAMOSETRON [Concomitant]
     Active Substance: RAMOSETRON HYDROCHLORIDE
     Dates: start: 20110628
  2. NAROPIN [Suspect]
     Active Substance: ROPIVACAINE HYDROCHLORIDE
     Indication: EPIDURAL ANAESTHESIA
     Route: 008
     Dates: start: 20110628, end: 20110628
  3. DYNASTAT [Concomitant]
     Active Substance: PARECOXIB SODIUM
     Dates: start: 20110628
  4. ALANYL GLUTAMINE [Suspect]
     Active Substance: ALANYL GLUTAMINE
     Route: 041
     Dates: start: 20110628, end: 20110628

REACTIONS (1)
  - Cardiac arrest [Fatal]

NARRATIVE: CASE EVENT DATE: 20110628
